FAERS Safety Report 11179702 (Version 1)
Quarter: 2015Q2

REPORT INFORMATION
  Report Type: Report from Study
  Country: US (occurrence: US)
  Receive Date: 20150611
  Receipt Date: 20150611
  Transmission Date: 20150821
  Serious: No
  Sender: FDA-Public Use
  Company Number: US-AMGEN-USASL2015055869

PATIENT
  Age: 67 Year
  Sex: Male

DRUGS (1)
  1. ENBREL [Suspect]
     Active Substance: ETANERCEPT
     Indication: PSORIASIS
     Dosage: 50 MG, UNK
     Route: 065
     Dates: start: 20101015, end: 201505

REACTIONS (3)
  - Blood iron increased [Not Recovered/Not Resolved]
  - Oxygen saturation decreased [Recovered/Resolved]
  - Blood ethanol increased [Not Recovered/Not Resolved]

NARRATIVE: CASE EVENT DATE: 2014
